FAERS Safety Report 22125590 (Version 1)
Quarter: 2023Q1

REPORT INFORMATION
  Report Type: Report from Study
  Country: US (occurrence: US)
  Receive Date: 20230322
  Receipt Date: 20230322
  Transmission Date: 20230417
  Serious: Yes (Hospitalization, Other)
  Sender: FDA-Public Use
  Company Number: US-KADMON-US-KAD-23-00005

PATIENT
  Age: 65 Year
  Sex: Male
  Weight: 45.4 kg

DRUGS (1)
  1. KD-033 [Suspect]
     Active Substance: KD-033
     Indication: Neoplasm
     Dosage: 930 UG, QW
     Route: 042
     Dates: start: 20230104, end: 20230207

REACTIONS (4)
  - Hypoglycaemia [Not Recovered/Not Resolved]
  - Aspartate aminotransferase increased [Not Recovered/Not Resolved]
  - Alanine aminotransferase increased [Not Recovered/Not Resolved]
  - Blood alkaline phosphatase increased [Not Recovered/Not Resolved]

NARRATIVE: CASE EVENT DATE: 20230301
